FAERS Safety Report 4383496-3 (Version None)
Quarter: 2004Q2

REPORT INFORMATION
  Report Type: 
  Country: None (occurrence: None)
  Receive Date: 20040618
  Receipt Date: 20040603
  Transmission Date: 20050107
  Serious: Yes (Hospitalization)
  Sender: FDA-Public Use
  Company Number: B0334697A

PATIENT
  Age: 36 Year
  Sex: Female

DRUGS (1)
  1. WELLBUTRIN [Suspect]
     Indication: EX-SMOKER

REACTIONS (5)
  - ABNORMAL BEHAVIOUR [None]
  - ANHEDONIA [None]
  - DEPRESSION [None]
  - MANIA [None]
  - THOUGHT BLOCKING [None]
